FAERS Safety Report 5352775-5 (Version None)
Quarter: 2007Q2

REPORT INFORMATION
  Report Type: 
  Country: None (occurrence: None)
  Receive Date: 20070518
  Receipt Date: 20070320
  Transmission Date: 20071010
  Serious: No
  Sender: FDA-Public Use
  Company Number: TPA2007A00658

PATIENT
  Age: 39 Year
  Sex: Female
  Weight: 68.0396 kg

DRUGS (4)
  1. ROZEREM [Suspect]
     Indication: SLEEP DISORDER
     Dosage: PER ORAL
     Route: 048
  2. TOPROL-XL [Concomitant]
  3. ZOLOFT [Concomitant]
  4. TEMAZEPAM [Concomitant]

REACTIONS (1)
  - DRUG INEFFECTIVE [None]
